FAERS Safety Report 16399242 (Version 1)
Quarter: 2019Q2

REPORT INFORMATION
  Report Type: Spontaneous
  Country: US (occurrence: US)
  Receive Date: 20190501
  Receipt Date: 20190501
  Transmission Date: 20190711
  Serious: No
  Sender: FDA-Public Use
  Company Number: None

PATIENT
  Age: 25 Year
  Sex: Female

DRUGS (4)
  1. NOVOLOG [Concomitant]
     Active Substance: INSULIN ASPART
  2. ENOXAPARIN SYR 30 MG/ 0.3 ML [Suspect]
     Active Substance: ENOXAPARIN SODIUM
     Dates: start: 201811, end: 201811
  3. LISINOPRIL. [Concomitant]
     Active Substance: LISINOPRIL
  4. LEVEMIR [Concomitant]
     Active Substance: INSULIN DETEMIR

REACTIONS (1)
  - Product dispensing error [None]

NARRATIVE: CASE EVENT DATE: 20181107
